FAERS Safety Report 19918354 (Version 3)
Quarter: 2022Q1

REPORT INFORMATION
  Report Type: Other
  Country: AT (occurrence: AT)
  Receive Date: 20211005
  Receipt Date: 20220103
  Transmission Date: 20220423
  Serious: No
  Sender: FDA-Public Use
  Company Number: AT-GLPHARMA-21.0991

PATIENT
  Age: 33 Year
  Sex: Female

DRUGS (14)
  1. RITUXIMAB [Suspect]
     Active Substance: RITUXIMAB
     Indication: Graft versus host disease
     Route: 065
  2. RITUXIMAB [Suspect]
     Active Substance: RITUXIMAB
     Indication: Multiple sclerosis
  3. IMATINIB [Suspect]
     Active Substance: IMATINIB
     Indication: Prophylaxis against transplant rejection
     Route: 065
  4. IMATINIB [Suspect]
     Active Substance: IMATINIB
     Indication: Multiple sclerosis
  5. IMATINIB [Suspect]
     Active Substance: IMATINIB
     Indication: Graft versus host disease
  6. SIROLIMUS [Suspect]
     Active Substance: SIROLIMUS
     Indication: Prophylaxis against transplant rejection
     Route: 065
  7. SIROLIMUS [Suspect]
     Active Substance: SIROLIMUS
     Indication: Graft versus host disease
  8. SIROLIMUS [Suspect]
     Active Substance: SIROLIMUS
     Indication: Multiple sclerosis
  9. TACROLIMUS [Suspect]
     Active Substance: TACROLIMUS
     Indication: Prophylaxis against transplant rejection
     Route: 065
  10. TACROLIMUS [Suspect]
     Active Substance: TACROLIMUS
     Indication: Graft versus host disease
  11. TACROLIMUS [Suspect]
     Active Substance: TACROLIMUS
     Indication: Multiple sclerosis
  12. CYCLOSPORINE [Suspect]
     Active Substance: CYCLOSPORINE
     Indication: Prophylaxis against transplant rejection
     Route: 065
  13. CYCLOSPORINE [Suspect]
     Active Substance: CYCLOSPORINE
     Indication: Graft versus host disease
  14. CYCLOSPORINE [Suspect]
     Active Substance: CYCLOSPORINE
     Indication: Multiple sclerosis

REACTIONS (2)
  - Disease progression [Unknown]
  - Drug ineffective [Unknown]
